FAERS Safety Report 4828542-5 (Version None)
Quarter: 2005Q4

REPORT INFORMATION
  Report Type: 
  Country: None (occurrence: None)
  Receive Date: 20051110
  Receipt Date: 20051101
  Transmission Date: 20060501
  Serious: Yes (Other)
  Sender: FDA-Public Use
  Company Number: 2005121930

PATIENT
  Age: 71 Year
  Sex: Female
  Weight: 59.8748 kg

DRUGS (2)
  1. LIPITOR [Suspect]
     Indication: BLOOD CHOLESTEROL INCREASED
     Dosage: 20 MG (1 D), ORAL
     Route: 048
     Dates: start: 20020829, end: 20050428
  2. FOSAMAX [Suspect]
     Indication: OSTEOPOROSIS
     Dosage: (70 MG, 1 IN 1 WK), ORAL
     Route: 048
     Dates: start: 20020421, end: 20050717

REACTIONS (8)
  - ASTHENIA [None]
  - BLOOD CHOLESTEROL INCREASED [None]
  - DECREASED APPETITE [None]
  - FATIGUE [None]
  - LOW DENSITY LIPOPROTEIN INCREASED [None]
  - MYALGIA [None]
  - MYOCARDIAL ISCHAEMIA [None]
  - WEIGHT DECREASED [None]
